FAERS Safety Report 6831372-6 (Version None)
Quarter: 2010Q3

REPORT INFORMATION
  Report Type: 
  Country: None (occurrence: None)
  Receive Date: 20100707
  Receipt Date: 20100624
  Transmission Date: 20110219
  Serious: Yes (Other)
  Sender: FDA-Public Use
  Company Number: 20108967

PATIENT
  Age: 55 Year
  Sex: Female

DRUGS (1)
  1. LIORESAL [Suspect]
     Indication: MUSCLE SPASTICITY
     Dosage: 500 MCG, DAILY, INTRATHECAL
     Route: 037

REACTIONS (4)
  - COMA [None]
  - IMPLANT SITE EFFUSION [None]
  - INFECTION [None]
  - MEDICAL DEVICE COMPLICATION [None]
